FAERS Safety Report 25431547 (Version 1)
Quarter: 2025Q2

REPORT INFORMATION
  Report Type: Report from Study
  Country: CA (occurrence: CA)
  Receive Date: 20250613
  Receipt Date: 20250613
  Transmission Date: 20250716
  Serious: Yes (Other)
  Sender: SANDOZ
  Company Number: CA-SANDOZ-SDZ2025CA013369

PATIENT
  Sex: Female

DRUGS (2)
  1. HYRIMOZ [Suspect]
     Active Substance: ADALIMUMAB-ADAZ
     Dosage: 40 MG, QW (STRENGTH: 40 MG IN PRE FILLED PEN)
     Route: 058
     Dates: start: 20241029
  2. HYRIMOZ [Suspect]
     Active Substance: ADALIMUMAB-ADAZ
     Indication: Crohn^s disease
     Route: 058
     Dates: start: 20241029

REACTIONS (3)
  - Faecal calprotectin increased [Unknown]
  - Gastrointestinal inflammation [Recovering/Resolving]
  - Off label use [Unknown]
